FAERS Safety Report 14576928 (Version 2)
Quarter: 2018Q1

REPORT INFORMATION
  Report Type: Report from Study
  Country: FR (occurrence: FR)
  Receive Date: 20180227
  Receipt Date: 20180316
  Transmission Date: 20180509
  Serious: Yes (Death)
  Sender: FDA-Public Use
  Company Number: PHHY2018FR025175

PATIENT
  Age: 29 Year
  Sex: Male

DRUGS (2)
  1. CTL019 [Suspect]
     Active Substance: TISAGENLECLEUCEL
     Indication: ACUTE LYMPHOCYTIC LEUKAEMIA
     Dosage: 1.87 X 10E8
     Route: 041
     Dates: start: 20180205
  2. NORADRENALINE [Concomitant]
     Active Substance: NOREPINEPHRINE
     Indication: PRODUCT USED FOR UNKNOWN INDICATION
     Dosage: UNK
     Route: 041
     Dates: start: 20180207

REACTIONS (9)
  - Multiple organ dysfunction syndrome [Fatal]
  - Lactic acidosis [Fatal]
  - Tachypnoea [Fatal]
  - Pyrexia [Fatal]
  - Hypotension [Fatal]
  - Staphylococcus test positive [Unknown]
  - Confusional state [Unknown]
  - Cytokine release syndrome [Fatal]
  - Agitation [Unknown]

NARRATIVE: CASE EVENT DATE: 20180207
